FAERS Safety Report 9256883 (Version 1)
Quarter: 2013Q2

REPORT INFORMATION
  Report Type: Spontaneous
  Country: US (occurrence: None)
  Receive Date: 20130423
  Receipt Date: 20130423
  Transmission Date: 20140414
  Serious: No
  Sender: FDA-Public Use
  Company Number: None

PATIENT
  Age: 65 Year
  Sex: Male
  Weight: 79.83 kg

DRUGS (1)
  1. DEBACTEROL CHEMICAL CAUTERIZER [Suspect]

REACTIONS (2)
  - Application site pain [None]
  - Application site pain [None]
